FAERS Safety Report 9200262 (Version 1)
Quarter: 2013Q1

REPORT INFORMATION
  Report Type: Spontaneous
  Country: US (occurrence: US)
  Receive Date: 20130329
  Receipt Date: 20130329
  Transmission Date: 20140127
  Serious: Yes (Other)
  Sender: FDA-Public Use
  Company Number: CHPA2013US005294

PATIENT
  Sex: Female

DRUGS (5)
  1. EXCEDRIN EXTRA STRENGTH [Suspect]
     Indication: MIGRAINE
     Dosage: 1 DF, UNK
     Route: 048
     Dates: start: 1995, end: 201112
  2. EXCEDRIN EXTRA STRENGTH [Concomitant]
     Indication: MIGRAINE
     Dosage: 1DF
     Route: 065
     Dates: start: 1995
  3. FIORICET [Concomitant]
  4. PROMETHAZINE [Concomitant]
     Dosage: UNK, PRN
  5. MIDRIN [Concomitant]

REACTIONS (9)
  - Hypothyroidism [Unknown]
  - Blood glucose fluctuation [Unknown]
  - Blood cortisol abnormal [Unknown]
  - Migraine [Not Recovered/Not Resolved]
  - Malaise [Recovered/Resolved]
  - Energy increased [Recovered/Resolved]
  - Off label use [Unknown]
  - Insomnia [Recovered/Resolved]
  - Incorrect dose administered [Unknown]
